FAERS Safety Report 7788344-7 (Version None)
Quarter: 2011Q3

REPORT INFORMATION
  Report Type: 
  Country: None (occurrence: None)
  Receive Date: 20110930
  Receipt Date: 20110919
  Transmission Date: 20111222
  Serious: Yes (Hospitalization)
  Sender: FDA-Public Use
  Company Number: BR-US-EMD SERONO, INC.-7076028

PATIENT
  Sex: Female

DRUGS (4)
  1. MIOSAN [Concomitant]
  2. BROMAZEPAM [Concomitant]
  3. REBIF [Suspect]
     Indication: RELAPSING-REMITTING MULTIPLE SCLEROSIS
     Dates: start: 20080830
  4. FLUOXETINE [Concomitant]

REACTIONS (2)
  - LYMPHADENITIS BACTERIAL [None]
  - COUGH [None]
